FAERS Safety Report 19304583 (Version 1)
Quarter: 2021Q2

REPORT INFORMATION
  Report Type: Spontaneous
  Country: CA (occurrence: CA)
  Receive Date: 20210526
  Receipt Date: 20210526
  Transmission Date: 20210717
  Serious: Yes (Life-Threatening, Other)
  Sender: FDA-Public Use
  Company Number: CA-CELLTRION INC.-2021CA007008

PATIENT

DRUGS (4)
  1. RITUXIMAB (UNKNOWN) [Suspect]
     Active Substance: RITUXIMAB
     Indication: MANTLE CELL LYMPHOMA
  2. BENDAMUSTINE [Suspect]
     Active Substance: BENDAMUSTINE
     Indication: NON-HODGKIN^S LYMPHOMA
     Dosage: MEDIAN DOSE OF BENDAMUSTINE WAS 90 MG/M2
  3. RITUXIMAB (UNKNOWN) [Suspect]
     Active Substance: RITUXIMAB
     Indication: NON-HODGKIN^S LYMPHOMA
     Dosage: UNK, CYCLIC
  4. BENDAMUSTINE [Suspect]
     Active Substance: BENDAMUSTINE
     Indication: MANTLE CELL LYMPHOMA

REACTIONS (11)
  - Febrile neutropenia [Unknown]
  - Infection [Unknown]
  - Disease recurrence [Unknown]
  - Thrombophlebitis [Unknown]
  - Myelodysplastic syndrome [Unknown]
  - Infusion related reaction [Unknown]
  - Neutropenia [Unknown]
  - B-cell lymphoma [Unknown]
  - Rash [Unknown]
  - Cytopenia [Unknown]
  - Off label use [Unknown]
